FAERS Safety Report 21690139 (Version 1)
Quarter: 2022Q4

REPORT INFORMATION
  Report Type: Spontaneous
  Country: US (occurrence: US)
  Receive Date: 20221206
  Receipt Date: 20221206
  Transmission Date: 20230113
  Serious: No
  Sender: FDA-Public Use
  Company Number: US-MYLANLABS-2022M1124955

PATIENT
  Age: 63 Year
  Sex: Female
  Weight: 102.51 kg

DRUGS (10)
  1. FENTANYL TRANSDERMAL SYSTEM [Suspect]
     Active Substance: FENTANYL
     Indication: Back pain
     Dosage: 25 MICROGRAM, QH (EVERY THREE DAYS)
     Route: 062
  2. METHOCARBAMOL [Concomitant]
     Active Substance: METHOCARBAMOL
     Dosage: 750 MILLIGRAM (750 MG 1-2X A DAY)
     Route: 065
  3. LISINOPRIL [Concomitant]
     Active Substance: LISINOPRIL
     Dosage: 5 MILLIGRAM, QD (5MG ONCE A DAY)
     Route: 065
  4. ACETAMINOPHEN\HYDROCODONE [Concomitant]
     Active Substance: ACETAMINOPHEN\HYDROCODONE
     Dosage: UNK (5/325MG 1-2 TABLET A DAY)
     Route: 065
  5. PRAVASTATIN [Concomitant]
     Active Substance: PRAVASTATIN
     Dosage: 80 MILLIGRAM, QD (80MG ONCE A DAY)
     Route: 065
  6. ALOGLIPTIN [Concomitant]
     Active Substance: ALOGLIPTIN
     Dosage: 25 MILLIGRAM, QD (25MG ONCE A DAY)
     Route: 065
  7. SEGLUROMET [Concomitant]
     Active Substance: ERTUGLIFLOZIN PIDOLATE\METFORMIN HYDROCHLORIDE
     Dosage: UNK UNK, BID (7.5 MG-1,000 MG TABLET TWICE A DAY)
     Route: 065
  8. PROPRANOLOL [Concomitant]
     Active Substance: PROPRANOLOL HYDROCHLORIDE
     Dosage: 60 MILLIGRAM, QD (60 MG ONCE A DAY)
     Route: 065
  9. DULOXETINE [Concomitant]
     Active Substance: DULOXETINE
     Dosage: 90 MILLIGRAM, QD (90MG ONCE A DAY)
     Route: 065
  10. PANTOPRAZOLE [Concomitant]
     Active Substance: PANTOPRAZOLE
     Dosage: 40 MILLIGRAM, QD (40MG ONCE A DAY)
     Route: 065

REACTIONS (6)
  - Application site erythema [Recovering/Resolving]
  - Application site irritation [Recovering/Resolving]
  - Application site pain [Recovering/Resolving]
  - Application site scab [Recovering/Resolving]
  - Wrong technique in product usage process [Unknown]
  - Incorrect product administration duration [Unknown]

NARRATIVE: CASE EVENT DATE: 20221001
